FAERS Safety Report 9631740 (Version 1)
Quarter: 2013Q4

REPORT INFORMATION
  Report Type: Spontaneous
  Country: US (occurrence: None)
  Receive Date: 20131017
  Receipt Date: 20131017
  Transmission Date: 20140711
  Serious: Yes (Other)
  Sender: FDA-Public Use
  Company Number: None

PATIENT
  Age: 85 Year
  Sex: Female
  Weight: 68.04 kg

DRUGS (1)
  1. TRAMADOL [Suspect]
     Indication: PAIN
     Dosage: TRAMADOL 50MG 1/2 PILL PO TWICE DAILY
     Route: 048
     Dates: start: 20130927, end: 20130929

REACTIONS (3)
  - Vomiting [None]
  - Nausea [None]
  - Dizziness [None]
